FAERS Safety Report 4941040-3 (Version None)
Quarter: 2006Q1

REPORT INFORMATION
  Report Type: 
  Country: None (occurrence: None)
  Receive Date: 20060313
  Receipt Date: 20050317
  Transmission Date: 20060701
  Serious: Yes (Hospitalization)
  Sender: FDA-Public Use
  Company Number: PHHO2005JP04779

PATIENT
  Age: 93 Year
  Sex: Female
  Weight: 47 kg

DRUGS (7)
  1. DIOVAN [Suspect]
     Indication: HYPERTENSION
     Dosage: 80 MG/DAY
     Route: 048
     Dates: start: 20021209, end: 20051122
  2. TOWAMIN [Concomitant]
  3. NICERGOLINE [Suspect]
     Dosage: 3DF
     Route: 048
     Dates: start: 19991116, end: 20051122
  4. SELBEX [Suspect]
     Dosage: 3DF
     Route: 048
     Dates: start: 19991116, end: 20051122
  5. DEZOLAM [Concomitant]
  6. BUFFERIN [Concomitant]
  7. ASPIRIN [Suspect]
     Dosage: 100 MG/DAILY
     Route: 048
     Dates: start: 20031212, end: 20051122

REACTIONS (5)
  - FALL [None]
  - FEMUR FRACTURE [None]
  - GASTRIC ULCER HAEMORRHAGE [None]
  - HAEMATEMESIS [None]
  - SURGERY [None]
